FAERS Safety Report 16761205 (Version 1)
Quarter: 2019Q3

REPORT INFORMATION
  Report Type: Spontaneous
  Country: US (occurrence: US)
  Receive Date: 20190830
  Receipt Date: 20190830
  Transmission Date: 20191005
  Serious: Yes (Other)
  Sender: FDA-Public Use
  Company Number: US-ANIPHARMA-2019-US-007730

PATIENT
  Age: 60 Year
  Sex: Female

DRUGS (6)
  1. COENZYME Q10 [Concomitant]
     Active Substance: UBIDECARENONE
  2. PROBIOTIC [Concomitant]
     Active Substance: PROBIOTICS NOS
  3. ARIMIDEX [Suspect]
     Active Substance: ANASTROZOLE
     Indication: BREAST CANCER
     Dosage: 1 DAILY
     Route: 048
     Dates: start: 2014, end: 20190422
  4. MULTIVITAMIN [Concomitant]
     Active Substance: VITAMINS
  5. IBRANCE [Suspect]
     Active Substance: PALBOCICLIB
  6. VITAMIN D3 [Concomitant]
     Active Substance: CHOLECALCIFEROL

REACTIONS (3)
  - Drug ineffective [Recovered/Resolved]
  - Arthralgia [Unknown]
  - Disease progression [Unknown]

NARRATIVE: CASE EVENT DATE: 2014
